FAERS Safety Report 8929368 (Version 4)
Quarter: 2013Q1

REPORT INFORMATION
  Report Type: Report from Study
  Country: US (occurrence: US)
  Receive Date: 20121127
  Receipt Date: 20130211
  Transmission Date: 20140127
  Serious: Yes (Hospitalization)
  Sender: FDA-Public Use
  Company Number: US-ABBOTT-12P-163-1010675-00

PATIENT
  Age: 30 Year
  Sex: Male

DRUGS (3)
  1. HUMIRA [Suspect]
     Indication: ANKYLOSING SPONDYLITIS
     Dates: start: 200911, end: 201202
  2. HUMIRA [Suspect]
     Dates: start: 201110
  3. NAPROXEN [Concomitant]

REACTIONS (12)
  - Hemiplegia [Unknown]
  - Conversion disorder [Recovered/Resolved]
  - Cerebrovascular accident [Unknown]
  - Attention deficit/hyperactivity disorder [Unknown]
  - Incorrect storage of drug [Unknown]
  - Injection site erythema [Recovered/Resolved]
  - Injection site swelling [Recovered/Resolved]
  - Injection site pain [Recovered/Resolved]
  - Injection site erythema [Recovered/Resolved]
  - Injection site pain [Recovered/Resolved]
  - Hypoaesthesia [Recovered/Resolved]
  - Muscular weakness [Recovered/Resolved]
